FAERS Safety Report 5761926-X (Version None)
Quarter: 2008Q2

REPORT INFORMATION
  Report Type: 
  Country: None (occurrence: None)
  Receive Date: 20080603
  Receipt Date: 20080519
  Transmission Date: 20081010
  Serious: Yes (Other)
  Sender: FDA-Public Use
  Company Number: 2008SP010286

PATIENT
  Sex: Female

DRUGS (2)
  1. CLARITIN [Suspect]
     Dates: start: 20080420
  2. MAGNESIUM SALICYLATE [Suspect]
     Dates: start: 20080420

REACTIONS (2)
  - ALCOHOL POISONING [None]
  - AMNESIA [None]
